FAERS Safety Report 24743116 (Version 1)
Quarter: 2024Q4

REPORT INFORMATION
  Report Type: Spontaneous
  Country: US (occurrence: US)
  Receive Date: 20241217
  Receipt Date: 20241217
  Transmission Date: 20250115
  Serious: No
  Sender: FERRING
  Company Number: US-FERRINGPH-2024FE05416

PATIENT
  Age: 72 Year
  Sex: Female

DRUGS (1)
  1. REBYOTA [Suspect]
     Active Substance: DONOR HUMAN STOOL
     Indication: Clostridium difficile infection
     Dosage: 150 ML, ONCE/SINGLE
     Route: 054
     Dates: start: 20240923, end: 20240923

REACTIONS (1)
  - Dizziness [Not Recovered/Not Resolved]

NARRATIVE: CASE EVENT DATE: 20240924
